FAERS Safety Report 5821499-X (Version None)
Quarter: 2008Q3

REPORT INFORMATION
  Report Type: 
  Country: None (occurrence: None)
  Receive Date: 20080724
  Receipt Date: 20080716
  Transmission Date: 20090109
  Serious: Yes (Hospitalization)
  Sender: FDA-Public Use
  Company Number: SE-BRISTOL-MYERS SQUIBB COMPANY-14212047

PATIENT
  Age: 65 Year
  Sex: Male
  Weight: 92 kg

DRUGS (12)
  1. CETUXIMAB [Suspect]
     Indication: COLORECTAL CANCER
     Dosage: 5 MG/ML
     Route: 042
     Dates: start: 20080304, end: 20080507
  2. FLUOROURACIL [Suspect]
     Indication: COLON CANCER
     Dosage: ALSO TAKEN 2400 MG/M2 INTRAVENOUSLY FROM 04MAR08-30APR08
     Route: 040
     Dates: start: 20080304, end: 20080430
  3. CALCIUM FOLINATE [Suspect]
     Indication: COLON CANCER
     Route: 042
     Dates: start: 20080304, end: 20080430
  4. OXALIPLATIN [Suspect]
     Indication: COLON CANCER
     Route: 042
     Dates: start: 20080304, end: 20080430
  5. AVASTIN [Suspect]
     Indication: COLON CANCER
     Route: 042
     Dates: start: 20080319, end: 20080430
  6. TETRALYSAL [Concomitant]
     Route: 048
     Dates: start: 20080317
  7. CYANOCOBALAMIN [Concomitant]
     Route: 048
     Dates: start: 20070608
  8. CALCIUM CARBONATE [Concomitant]
     Route: 048
     Dates: start: 20080428
  9. DUROFERON [Concomitant]
     Route: 048
     Dates: start: 20070608
  10. ATACAND HCT [Concomitant]
     Route: 048
  11. ACETYLSALICYLIC ACID SRT [Concomitant]
     Route: 048
     Dates: start: 20060915
  12. FOLACIN [Concomitant]
     Route: 048
     Dates: start: 20070608

REACTIONS (1)
  - CEREBRAL INFARCTION [None]
